FAERS Safety Report 10775941 (Version 2)
Quarter: 2015Q1

REPORT INFORMATION
  Report Type: Spontaneous
  Country: US (occurrence: US)
  Receive Date: 20150209
  Receipt Date: 20150227
  Transmission Date: 20150721
  Serious: Yes (Other)
  Sender: FDA-Public Use
  Company Number: US-UNITED THERAPEUTICS-UNT-2015-001244

PATIENT
  Age: 55 Year
  Sex: Female
  Weight: 71.66 kg

DRUGS (4)
  1. REMODULIN [Suspect]
     Active Substance: TREPROSTINIL
     Dosage: 0.039 ?G/KG, CONTINUING
     Route: 041
  2. ADCIRCA [Concomitant]
     Active Substance: TADALAFIL
     Indication: PRODUCT USED FOR UNKNOWN INDICATION
  3. REMODULIN [Suspect]
     Active Substance: TREPROSTINIL
     Indication: PULMONARY HYPERTENSION
     Dosage: 0.037 ?G/KG, CONTINUING
     Route: 041
     Dates: start: 20140625
  4. LETAIRIS [Concomitant]
     Active Substance: AMBRISENTAN
     Indication: PRODUCT USED FOR UNKNOWN INDICATION

REACTIONS (7)
  - Fatigue [Unknown]
  - Nausea [Unknown]
  - Large intestine polyp [Unknown]
  - Oesophageal disorder [Unknown]
  - Malaise [Unknown]
  - Incorrect dose administered [Unknown]
  - Head discomfort [Unknown]

NARRATIVE: CASE EVENT DATE: 201502
